FAERS Safety Report 5389493-3 (Version None)
Quarter: 2007Q3

REPORT INFORMATION
  Report Type: 
  Country: None (occurrence: None)
  Receive Date: 20070717
  Receipt Date: 20070710
  Transmission Date: 20080115
  Serious: Yes (Hospitalization, Other)
  Sender: FDA-Public Use
  Company Number: FR-PFIZER INC-2007056539

PATIENT
  Sex: Male

DRUGS (6)
  1. ALDACTONE [Suspect]
     Route: 048
  2. CELEBREX [Suspect]
     Indication: PAIN IN EXTREMITY
  3. LASIX [Suspect]
     Route: 048
  4. TRIATEC [Suspect]
     Route: 048
  5. CORDARONE [Suspect]
  6. FLUINDIONE [Concomitant]

REACTIONS (2)
  - HYPERKALAEMIA [None]
  - RENAL FAILURE ACUTE [None]
